FAERS Safety Report 4489484-0 (Version None)
Quarter: 2004Q4

REPORT INFORMATION
  Report Type: 
  Country: None (occurrence: None)
  Receive Date: 20041101
  Receipt Date: 20041022
  Transmission Date: 20050328
  Serious: Yes (Other)
  Sender: FDA-Public Use
  Company Number: PHBS2004CA14233

PATIENT
  Sex: Male

DRUGS (6)
  1. CLOZARIL [Suspect]
     Dosage: 300 MG/D
     Route: 048
  2. FLUPHENAZINE [Concomitant]
     Route: 065
  3. DEPAKENE [Concomitant]
     Route: 065
  4. PAXIL [Concomitant]
     Route: 065
  5. FOSAMAX [Concomitant]
     Route: 065
  6. ZANTAC [Concomitant]
     Route: 065

REACTIONS (5)
  - CONFUSIONAL STATE [None]
  - DISORIENTATION [None]
  - FALL [None]
  - LOSS OF CONSCIOUSNESS [None]
  - NERVOUS SYSTEM DISORDER [None]
